FAERS Safety Report 14036961 (Version 2)
Quarter: 2024Q4

REPORT INFORMATION
  Report Type: Spontaneous
  Country: AU (occurrence: AU)
  Receive Date: 20171004
  Receipt Date: 20241107
  Transmission Date: 20250114
  Serious: Yes (Disabling, Other)
  Sender: ALKEM
  Company Number: None

PATIENT
  Age: 45 Year
  Sex: Male

DRUGS (7)
  1. MYCOPHENOLATE MOFETIL [Suspect]
     Active Substance: MYCOPHENOLATE MOFETIL
     Indication: Immunosuppressant drug therapy
     Dosage: UNK (MYCOPHENOLATE SODIUM)
     Route: 065
  2. MYCOPHENOLATE MOFETIL [Suspect]
     Active Substance: MYCOPHENOLATE MOFETIL
     Dosage: UNK (DOSE REDUCED)
     Route: 065
  3. TACROLIMUS [Interacting]
     Active Substance: TACROLIMUS
     Indication: Immunosuppressant drug therapy
     Dosage: UNK
     Route: 065
  4. TACROLIMUS [Interacting]
     Active Substance: TACROLIMUS
     Dosage: UNK (DOSE REDUCED)
     Route: 065
  5. PREDNISONE [Suspect]
     Active Substance: PREDNISONE
     Indication: Immunosuppressant drug therapy
     Dosage: UNK
     Route: 065
  6. PREDNISONE [Suspect]
     Active Substance: PREDNISONE
     Dosage: UNK (DOSE REDUCED)
     Route: 065
  7. VORICONAZOLE [Interacting]
     Active Substance: VORICONAZOLE
     Indication: Scedosporium infection
     Dosage: UNK
     Route: 048

REACTIONS (5)
  - Scedosporium infection [Recovering/Resolving]
  - Polyomavirus-associated nephropathy [Recovering/Resolving]
  - Osteomyelitis [Recovering/Resolving]
  - Staphylococcal infection [Recovering/Resolving]
  - Drug interaction [Unknown]
